FAERS Safety Report 11109913 (Version 1)
Quarter: 2015Q2

REPORT INFORMATION
  Report Type: Spontaneous
  Country: US (occurrence: None)
  Receive Date: 20150512
  Receipt Date: 20150512
  Transmission Date: 20150821
  Serious: No
  Sender: FDA-Public Use
  Company Number: None

PATIENT
  Sex: Male

DRUGS (1)
  1. JAKAFI [Suspect]
     Active Substance: RUXOLITINIB
     Indication: LYMPHATIC DISORDER
     Route: 048
     Dates: start: 20120814

REACTIONS (8)
  - Depression [None]
  - Nail disorder [None]
  - Dizziness [None]
  - Hyperkeratosis [None]
  - Insomnia [None]
  - Fatigue [None]
  - Neuropathy peripheral [None]
  - Rash [None]
